FAERS Safety Report 5368840-2 (Version None)
Quarter: 2007Q2

REPORT INFORMATION
  Report Type: 
  Country: None (occurrence: None)
  Receive Date: 20070621
  Receipt Date: 20070621
  Transmission Date: 20071010
  Serious: Yes (Hospitalization)
  Sender: FDA-Public Use
  Company Number: None

PATIENT
  Age: 90 Year
  Sex: Female
  Weight: 48.5 kg

DRUGS (1)
  1. PHENYTOIN [Suspect]
     Indication: CONVULSION
     Dosage: 300 MG QAM 200 MG QAM AND PM OTHER
     Dates: start: 20070605, end: 20070619

REACTIONS (4)
  - ANTICONVULSANT DRUG LEVEL INCREASED [None]
  - BLOOD ALBUMIN DECREASED [None]
  - SOMNOLENCE [None]
  - URINARY TRACT INFECTION [None]
